FAERS Safety Report 9356277 (Version 2)
Quarter: 2013Q3

REPORT INFORMATION
  Report Type: Spontaneous
  Country: SE (occurrence: SE)
  Receive Date: 20130619
  Receipt Date: 20130716
  Transmission Date: 20140515
  Serious: Yes (Death, Hospitalization, Other)
  Sender: FDA-Public Use
  Company Number: SE-BRISTOL-MYERS SQUIBB COMPANY-18934125

PATIENT
  Age: 75 Year
  Sex: Female

DRUGS (1)
  1. SPRYCEL [Suspect]
     Indication: CHRONIC MYELOID LEUKAEMIA
     Dosage: 22DC06-22FB07:50MG:1INDY?23FB07-7AG07:40MG:1IN2DY?8AG07-27NV08:20MG:2IN1DY
     Route: 048
     Dates: start: 20061222, end: 20091016

REACTIONS (4)
  - Colorectal cancer [Fatal]
  - Pleural effusion [Recovering/Resolving]
  - Pulmonary arterial wedge pressure increased [Unknown]
  - Intraocular pressure increased [Unknown]
